FAERS Safety Report 7462884-2 (Version None)
Quarter: 2011Q2

REPORT INFORMATION
  Report Type: 
  Country: None (occurrence: None)
  Receive Date: 20110506
  Receipt Date: 20110408
  Transmission Date: 20111010
  Serious: Yes (Hospitalization)
  Sender: FDA-Public Use
  Company Number: US-BAYER-201014795NA

PATIENT
  Age: 22 Year
  Sex: Female
  Weight: 70.295 kg

DRUGS (7)
  1. CIPROFLOXACIN [Concomitant]
     Indication: INFECTION
     Dosage: 250 MG, UNK
     Dates: start: 20060222
  2. AMOXI-CLAVULANICO [Concomitant]
     Indication: INFECTION
     Dosage: 500 MG, UNK
     Dates: start: 20060327
  3. NAPROXEN [Concomitant]
     Dosage: UNK
     Dates: start: 20060308
  4. YAZ [Suspect]
     Indication: PRODUCT USED FOR UNKNOWN INDICATION
     Dosage: AS USED DOSE: UNK
     Route: 048
  5. FLUCONAZOLE [Concomitant]
     Indication: INFECTION
     Dosage: 150 MG, UNK
     Dates: start: 20060222
  6. YASMIN [Suspect]
     Indication: PRODUCT USED FOR UNKNOWN INDICATION
  7. SULFAMETHOXAZOLE AND TRIMETHOPRIM [Concomitant]
     Indication: INFECTION
     Dosage: UNK
     Dates: start: 20060212

REACTIONS (5)
  - PELVIC VENOUS THROMBOSIS [None]
  - LOBAR PNEUMONIA [None]
  - DEEP VEIN THROMBOSIS [None]
  - VENA CAVA THROMBOSIS [None]
  - PULMONARY EMBOLISM [None]
